FAERS Safety Report 6305921-0 (Version None)
Quarter: 2009Q3

REPORT INFORMATION
  Report Type: 
  Country: None (occurrence: None)
  Receive Date: 20090812
  Receipt Date: 20090730
  Transmission Date: 20100115
  Serious: Yes (Other)
  Sender: FDA-Public Use
  Company Number: US-PFIZER INC-2009248966

PATIENT
  Sex: Female
  Weight: 71.667 kg

DRUGS (5)
  1. SOLU-MEDROL [Suspect]
     Dates: start: 20090716, end: 20090716
  2. ZITHROMAX [Suspect]
  3. FLOVENT [Concomitant]
  4. PROVENTIL GENTLEHALER [Concomitant]
  5. ALBUTEROL [Concomitant]

REACTIONS (4)
  - CHEST DISCOMFORT [None]
  - DYSPNOEA [None]
  - HYPERSENSITIVITY [None]
  - HYPERVENTILATION [None]
